FAERS Safety Report 4328910-4 (Version None)
Quarter: 2004Q1

REPORT INFORMATION
  Report Type: 
  Country: None (occurrence: None)
  Receive Date: 20040331
  Receipt Date: 20040326
  Transmission Date: 20041129
  Serious: Yes (Hospitalization)
  Sender: FDA-Public Use
  Company Number: 04-00143

PATIENT
  Age: 41 Year
  Sex: Female
  Weight: 74.8435 kg

DRUGS (1)
  1. MINOXIDIL [Suspect]
     Indication: ALOPECIA
     Dosage: 2% , 1ML. TWICE DAILY, TOPICAL
     Route: 061
     Dates: start: 20030401, end: 20030701

REACTIONS (11)
  - BURNING SENSATION [None]
  - DEHYDRATION [None]
  - FAECAL INCONTINENCE [None]
  - HEART RATE INCREASED [None]
  - HYPOTENSION [None]
  - LOCALISED EXFOLIATION [None]
  - PYREXIA [None]
  - SWELLING FACE [None]
  - TOXIC SHOCK SYNDROME [None]
  - URINARY TRACT INFECTION STAPHYLOCOCCAL [None]
  - VAGINAL BURNING SENSATION [None]
